FAERS Safety Report 6235251-7 (Version None)
Quarter: 2009Q2

REPORT INFORMATION
  Report Type: 
  Country: None (occurrence: None)
  Receive Date: 20090618
  Receipt Date: 20090608
  Transmission Date: 20091009
  Serious: Yes (Other)
  Sender: FDA-Public Use
  Company Number: US-SANOFI-SYNTHELABO-A03200902530

PATIENT
  Age: 61 Year
  Sex: Male

DRUGS (3)
  1. HYDROCODONE BITARTRATE [Concomitant]
     Indication: DRUG USE FOR UNKNOWN INDICATION
     Dosage: UNK
     Route: 065
  2. CELEBREX [Concomitant]
     Indication: DRUG USE FOR UNKNOWN INDICATION
     Dosage: UNK
     Route: 065
  3. AMBIEN CR [Suspect]
     Indication: ARTHRITIS
     Dosage: UNK
     Route: 048

REACTIONS (3)
  - AMNESIA [None]
  - ROAD TRAFFIC ACCIDENT [None]
  - SOMNAMBULISM [None]
